FAERS Safety Report 8602883-8 (Version None)
Quarter: 2012Q3

REPORT INFORMATION
  Report Type: 
  Country: None (occurrence: None)
  Receive Date: 20120817
  Receipt Date: 20120809
  Transmission Date: 20120928
  Serious: Yes (Congenital Anomaly)
  Sender: FDA-Public Use
  Company Number: US-GLAXOSMITHKLINE-A0989901A

PATIENT
  Sex: Female

DRUGS (1)
  1. PAXIL [Suspect]
     Route: 064

REACTIONS (10)
  - SEVER'S DISEASE [None]
  - FOOT DEFORMITY [None]
  - LIMB DEFORMITY [None]
  - PATELLOFEMORAL PAIN SYNDROME [None]
  - MUSCULAR WEAKNESS [None]
  - CONGENITAL MULTIPLEX ARTHROGRYPOSIS [None]
  - ARTHROPATHY [None]
  - FOETAL EXPOSURE DURING PREGNANCY [None]
  - NECK DEFORMITY [None]
  - JOINT DISLOCATION [None]
